FAERS Safety Report 5108697-8 (Version None)
Quarter: 2006Q3

REPORT INFORMATION
  Report Type: 
  Country: None (occurrence: None)
  Receive Date: 20060731
  Receipt Date: 20060528
  Transmission Date: 20061208
  Serious: No
  Sender: FDA-Public Use
  Company Number: 2006PV014611

PATIENT
  Age: 48 Year
  Sex: Female
  Weight: 149.687 kg

DRUGS (17)
  1. BYETTA [Suspect]
     Indication: DIABETES MELLITUS NON-INSULIN-DEPENDENT
     Dosage: 5 MCG;BID;SC
     Route: 058
     Dates: start: 20060524
  2. GLUCOPHAGE [Concomitant]
  3. ZOCOR [Concomitant]
  4. NEXIUM [Concomitant]
  5. POTASSIUM ACETATE [Concomitant]
  6. NORVASC [Concomitant]
  7. COZAAR [Concomitant]
  8. LASIX [Concomitant]
  9. ULTRAM [Concomitant]
  10. PAXIL [Concomitant]
  11. ZYRTEC [Concomitant]
  12. SENEMET [Concomitant]
  13. ALBUTEROL [Concomitant]
  14. NASALEX [Concomitant]
  15. ADVAIR HFA [Concomitant]
  16. DARVOCET [Concomitant]
  17. NEBULIZER [Concomitant]

REACTIONS (7)
  - BACK PAIN [None]
  - DYSPEPSIA [None]
  - HEADACHE [None]
  - INFLUENZA LIKE ILLNESS [None]
  - INJECTION SITE BRUISING [None]
  - INJECTION SITE PAIN [None]
  - PAIN IN EXTREMITY [None]
